FAERS Safety Report 20514377 (Version 2)
Quarter: 2022Q2

REPORT INFORMATION
  Report Type: Report from Study
  Country: IN (occurrence: IN)
  Receive Date: 20220224
  Receipt Date: 20220420
  Transmission Date: 20220721
  Serious: Yes (Hospitalization, Other)
  Sender: FDA-Public Use
  Company Number: IN-NOVARTISPH-NVSC2022IN039550

PATIENT
  Age: 32 Year
  Sex: Male

DRUGS (30)
  1. SIMULECT [Suspect]
     Active Substance: BASILIXIMAB
     Indication: Renal transplant
     Dosage: 20 MG
     Route: 065
     Dates: start: 20220131, end: 20220204
  2. SOLU-MEDROL [Concomitant]
     Active Substance: METHYLPREDNISOLONE SODIUM SUCCINATE
     Indication: Product used for unknown indication
     Dosage: UNK
     Route: 065
  3. RPO [Concomitant]
     Indication: Product used for unknown indication
     Dosage: UNK
     Route: 065
  4. Q-RAN [Concomitant]
     Indication: Product used for unknown indication
     Dosage: UNK
     Route: 065
  5. CEFOPERAZONE SODIUM\SULBACTAM SODIUM [Concomitant]
     Active Substance: CEFOPERAZONE SODIUM\SULBACTAM SODIUM
     Indication: Product used for unknown indication
     Dosage: UNK
     Route: 065
  6. ACETAMINOPHEN [Concomitant]
     Active Substance: ACETAMINOPHEN
     Indication: Product used for unknown indication
     Dosage: UNK
     Route: 065
  7. PAN [Concomitant]
     Indication: Product used for unknown indication
     Dosage: UNK
     Route: 065
  8. ONDANSETRON HYDROCHLORIDE [Concomitant]
     Active Substance: ONDANSETRON HYDROCHLORIDE
     Indication: Product used for unknown indication
     Dosage: UNK
     Route: 065
  9. TRAMADOL [Concomitant]
     Active Substance: TRAMADOL
     Indication: Product used for unknown indication
     Dosage: UNK
     Route: 065
  10. METHYLPREDNISOLONE [Concomitant]
     Active Substance: METHYLPREDNISOLONE
     Indication: Product used for unknown indication
     Dosage: UNK
     Route: 065
  11. PLASMANATE [Concomitant]
     Active Substance: ALBUMIN (HUMAN)\PLASMA PROTEIN FRACTION (HUMAN)
     Indication: Product used for unknown indication
     Dosage: UNK (IVF)
     Route: 065
  12. DUPHALAC [Concomitant]
     Active Substance: LACTULOSE
     Indication: Product used for unknown indication
     Dosage: UNK, QD (10 DAYS)
     Route: 065
  13. RANITIDINE HYDROCHLORIDE [Concomitant]
     Active Substance: RANITIDINE HYDROCHLORIDE
     Indication: Product used for unknown indication
     Dosage: UNK, QD (BEFORE BREAKFAST)
     Route: 065
  14. NEBIVOLOL HYDROCHLORIDE [Concomitant]
     Active Substance: NEBIVOLOL HYDROCHLORIDE
     Indication: Product used for unknown indication
     Dosage: UNK, BID
     Route: 065
  15. PREDNISOLONE [Concomitant]
     Active Substance: PREDNISOLONE
     Indication: Product used for unknown indication
     Dosage: UNK UNK, QD, (1-0-0), (AFTER BREAKFAST)
     Route: 065
  16. VALACYCLOVIR [Concomitant]
     Active Substance: VALACYCLOVIR HYDROCHLORIDE
     Indication: Product used for unknown indication
     Dosage: UNK, QD
     Route: 065
  17. SEPTRAN [Concomitant]
     Indication: Product used for unknown indication
     Dosage: UNK
     Route: 065
  18. BIOMUS [Concomitant]
     Indication: Product used for unknown indication
     Dosage: UNK, BID (9 AM TO 9 PM)
     Route: 065
  19. MYCOPHENOLATE MOFETIL [Concomitant]
     Active Substance: MYCOPHENOLATE MOFETIL
     Indication: Product used for unknown indication
     Dosage: UNK, BID (2-0-2 , 9AM  9PM)
     Route: 065
  20. LARETOL [Concomitant]
     Indication: Product used for unknown indication
     Dosage: UNK
     Route: 065
  21. AMLODIPINE [Concomitant]
     Active Substance: AMLODIPINE BESYLATE
     Indication: Product used for unknown indication
     Dosage: UNK
     Route: 065
  22. SOBISIS [Concomitant]
     Indication: Product used for unknown indication
     Dosage: UNK
     Route: 065
  23. SEVLAREN [Concomitant]
     Indication: Product used for unknown indication
     Dosage: UNK
     Route: 065
  24. TORSEMIDE [Concomitant]
     Active Substance: TORSEMIDE
     Indication: Product used for unknown indication
     Dosage: UNK
     Route: 065
  25. DULCOLAX NOS [Concomitant]
     Active Substance: BISACODYL OR DOCUSATE SODIUM
     Indication: Product used for unknown indication
     Dosage: UNK
     Route: 065
  26. EIDO FE [Concomitant]
     Indication: Product used for unknown indication
     Dosage: UNK
     Route: 065
  27. SHELCAL CT [Concomitant]
     Indication: Product used for unknown indication
     Dosage: UNK, QD
     Route: 065
  28. DOMPERIDONE\PANTOPRAZOLE SODIUM [Concomitant]
     Active Substance: DOMPERIDONE\PANTOPRAZOLE SODIUM
     Indication: Product used for unknown indication
     Dosage: UNK
     Route: 065
  29. CILNIDIPINE [Concomitant]
     Active Substance: CILNIDIPINE
     Indication: Product used for unknown indication
     Dosage: UNK, BID
     Route: 065
  30. DOLO [Concomitant]
     Indication: Product used for unknown indication
     Dosage: 1 DOSAGE FORM (SOS OF PAIN)
     Route: 065

REACTIONS (1)
  - Kidney transplant rejection [Recovering/Resolving]

NARRATIVE: CASE EVENT DATE: 20220209
